FAERS Safety Report 5131103-4 (Version None)
Quarter: 2006Q3

REPORT INFORMATION
  Report Type: 
  Country: None (occurrence: None)
  Receive Date: 20060825
  Receipt Date: 20051123
  Transmission Date: 20061208
  Serious: Yes (Other)
  Sender: FDA-Public Use
  Company Number: 2005161527

PATIENT
  Sex: Male

DRUGS (4)
  1. VFEND [Suspect]
     Indication: ASPERGILLOSIS
     Dosage: 400 MG (200 MG, 2 IN 1 D), UNKNOWN
     Dates: start: 20061117
  2. PREDNISONE TAB [Concomitant]
  3. ALBUTEROL [Concomitant]
  4. ATROVENT [Concomitant]

REACTIONS (1)
  - VISUAL DISTURBANCE [None]
